FAERS Safety Report 17934397 (Version 1)
Quarter: 2020Q2

REPORT INFORMATION
  Report Type: Spontaneous
  Country: US (occurrence: US)
  Receive Date: 20200623
  Receipt Date: 20200623
  Transmission Date: 20200714
  Serious: Yes (Death)
  Sender: FDA-Public Use
  Company Number: None

PATIENT
  Age: 72 Year
  Sex: Female
  Weight: 95 kg

DRUGS (1)
  1. REMDESIVIR. [Suspect]
     Active Substance: REMDESIVIR
     Indication: COVID-19
     Route: 042
     Dates: start: 20200617, end: 20200619

REACTIONS (5)
  - Respiratory failure [None]
  - Disease progression [None]
  - COVID-19 pneumonia [None]
  - Pneumonia [None]
  - SARS-CoV-2 test positive [None]

NARRATIVE: CASE EVENT DATE: 20200619
